FAERS Safety Report 10657469 (Version 1)
Quarter: 2014Q4

REPORT INFORMATION
  Report Type: Spontaneous
  Country: CA (occurrence: None)
  Receive Date: 20141215
  Receipt Date: 20141215
  Transmission Date: 20150529
  Serious: Yes (Hospitalization)
  Sender: FDA-Public Use
  Company Number: A1084770A

PATIENT
  Age: 58 Year
  Sex: Male

DRUGS (8)
  1. ECULIZUMAB [Suspect]
     Active Substance: ECULIZUMAB
     Indication: ILL-DEFINED DISORDER
     Route: 042
  2. LORAZEPAM, UNKNOWN [Concomitant]
  3. HALOPERIDOL, UNKNOWN [Concomitant]
  4. PAROXETINE HYDROCHLORIDE. [Suspect]
     Active Substance: PAROXETINE HYDROCHLORIDE
     Indication: ILL-DEFINED DISORDER
     Route: 048
  5. PARACETAMOL, UNKNOWN [Concomitant]
  6. TYLENOL WITH CODEINE, UNKNOWN (CAFFEINE + CODEINE PHOSPHATE + PARACETAMOL) [Concomitant]
  7. IBUPROFEN, UNKNOWN [Concomitant]
  8. CIPROFLOXACIN HCI, UNKNOWN [Concomitant]

REACTIONS (3)
  - Suicidal ideation [None]
  - Fatigue [None]
  - Treatment noncompliance [None]
